FAERS Safety Report 11167255 (Version 1)
Quarter: 2015Q2

REPORT INFORMATION
  Report Type: Spontaneous
  Country: US (occurrence: None)
  Receive Date: 20150604
  Receipt Date: 20150604
  Transmission Date: 20150821
  Serious: No
  Sender: FDA-Public Use
  Company Number: None

PATIENT
  Age: 51 Year
  Sex: Male

DRUGS (1)
  1. TACROLIMUS. [Suspect]
     Active Substance: TACROLIMUS
     Dates: start: 201010

REACTIONS (3)
  - Rash [None]
  - Eye infection [None]
  - Eye irritation [None]

NARRATIVE: CASE EVENT DATE: 20141226
